FAERS Safety Report 5631018-9 (Version None)
Quarter: 2008Q1

REPORT INFORMATION
  Report Type: 
  Country: None (occurrence: None)
  Receive Date: 20080219
  Receipt Date: 20080208
  Transmission Date: 20080703
  Serious: Yes (Other)
  Sender: FDA-Public Use
  Company Number: CA-PFIZER INC-2008012814

PATIENT

DRUGS (1)
  1. CYCLOKAPRON (IV) [Suspect]

REACTIONS (1)
  - FRACTURE [None]
